FAERS Safety Report 8160069-8 (Version None)
Quarter: 2012Q1

REPORT INFORMATION
  Report Type: 
  Country: None (occurrence: None)
  Receive Date: 20120223
  Receipt Date: 20120216
  Transmission Date: 20120608
  Serious: Yes (Other)
  Sender: FDA-Public Use
  Company Number: PHHY2012GB013484

PATIENT
  Age: 65 Year
  Sex: Female
  Weight: 65 kg

DRUGS (1)
  1. METRONIDAZOLE [Suspect]
     Dosage: 200 MG, TID
     Route: 048

REACTIONS (2)
  - VOMITING [None]
  - ARTHRALGIA [None]
